FAERS Safety Report 7105956-4 (Version None)
Quarter: 2010Q4

REPORT INFORMATION
  Report Type: 
  Country: None (occurrence: None)
  Receive Date: 20101110
  Receipt Date: 20101029
  Transmission Date: 20110411
  Serious: Yes (Other)
  Sender: FDA-Public Use
  Company Number: CV20100610

PATIENT
  Age: 40 Year
  Sex: Male

DRUGS (3)
  1. CEFTRIAXON [Suspect]
     Indication: STATUS EPILEPTICUS
     Dosage: 4 GM (2 GM, 1 IN 12 HR) INTRAVENOUS
     Route: 042
  2. PHENYTOIN [Concomitant]
  3. METRONIDAZOLE [Concomitant]

REACTIONS (3)
  - DRUG RASH WITH EOSINOPHILIA AND SYSTEMIC SYMPTOMS [None]
  - HEPATIC ENZYME INCREASED [None]
  - LYMPHADENOPATHY [None]
